FAERS Safety Report 9476027 (Version 1)
Quarter: 2013Q3

REPORT INFORMATION
  Report Type: Spontaneous
  Country: DE (occurrence: DE)
  Receive Date: 20130826
  Receipt Date: 20130826
  Transmission Date: 20140515
  Serious: Yes (Death)
  Sender: FDA-Public Use
  Company Number: DE-PFIZER INC-2013240846

PATIENT
  Age: 85 Year
  Sex: Male
  Weight: 73 kg

DRUGS (5)
  1. ALPROSTADIL [Suspect]
     Indication: PERIPHERAL ARTERIAL OCCLUSIVE DISEASE
     Dosage: UNK
     Route: 042
  2. RAMIPRIL [Concomitant]
     Indication: HYPERTENSION
     Dosage: 2X5
     Route: 048
  3. AMLODIPINE [Concomitant]
     Indication: HYPERTENSION
     Dosage: 2X5
     Route: 048
  4. CARVEDILOL [Concomitant]
     Indication: HYPERTENSION
     Dosage: 25
     Route: 048
  5. ASS [Concomitant]
     Indication: PERIPHERAL ARTERIAL OCCLUSIVE DISEASE
     Dosage: 100
     Route: 048

REACTIONS (6)
  - Renal failure [Fatal]
  - Atrial fibrillation [Fatal]
  - Cardiac failure [Fatal]
  - Myocardial infarction [Fatal]
  - Pneumonia [Fatal]
  - Off label use [Unknown]
